FAERS Safety Report 10382950 (Version 1)
Quarter: 2014Q3

REPORT INFORMATION
  Report Type: Spontaneous
  Country: US (occurrence: US)
  Receive Date: 20140813
  Receipt Date: 20140813
  Transmission Date: 20150326
  Serious: No
  Sender: FDA-Public Use
  Company Number: US-SA-2014SA059794

PATIENT
  Sex: Male
  Weight: 110 kg

DRUGS (1)
  1. FABRAZYME [Suspect]
     Active Substance: AGALSIDASE BETA
     Indication: FABRY^S DISEASE
     Route: 042

REACTIONS (4)
  - Burning sensation [Unknown]
  - Therapeutic response decreased [Unknown]
  - Arthralgia [Unknown]
  - Weight decreased [Unknown]
